FAERS Safety Report 9857131 (Version 1)
Quarter: 2014Q1

REPORT INFORMATION
  Report Type: Spontaneous
  Country: IT (occurrence: None)
  Receive Date: 20140128
  Receipt Date: 20140128
  Transmission Date: 20141002
  Serious: Yes (Hospitalization)
  Sender: FDA-Public Use
  Company Number: B0963047A

PATIENT
  Age: 40 Year
  Sex: Female

DRUGS (4)
  1. PAROXETINE HYDROCHLORIDE [Suspect]
     Indication: BIPOLAR DISORDER
     Dates: start: 20131216
  2. VALPROATE SEMISODIUM [Suspect]
     Indication: PRODUCT USED FOR UNKNOWN INDICATION
     Dates: start: 20131216
  3. ARIPIPRAZOLE [Suspect]
     Indication: PRODUCT USED FOR UNKNOWN INDICATION
     Dates: start: 20131216
  4. DELORAZEPAM [Suspect]
     Indication: BIPOLAR DISORDER

REACTIONS (5)
  - Abdominal pain [None]
  - Drug abuse [None]
  - Alcohol use [None]
  - Sopor [None]
  - Incontinence [None]
